FAERS Safety Report 17105888 (Version 5)
Quarter: 2020Q2

REPORT INFORMATION
  Report Type: Report from Study
  Country: US (occurrence: US)
  Receive Date: 20191203
  Receipt Date: 20200529
  Transmission Date: 20200713
  Serious: No
  Sender: FDA-Public Use
  Company Number: NVSC2019US056755

PATIENT
  Age: 53 Year
  Sex: Female

DRUGS (1)
  1. GILENYA [Suspect]
     Active Substance: FINGOLIMOD HYDROCHLORIDE
     Indication: MULTIPLE SCLEROSIS
     Dosage: 0.5 MG
     Route: 048
     Dates: start: 20160114

REACTIONS (13)
  - Labyrinthitis [Unknown]
  - Lymphocyte count decreased [Unknown]
  - Alopecia [Unknown]
  - Bronchitis [Recovering/Resolving]
  - Cough [Unknown]
  - Product dose omission [Unknown]
  - Amnesia [Unknown]
  - Fatigue [Unknown]
  - Injury [Unknown]
  - Dizziness [Unknown]
  - Wheezing [Unknown]
  - Fall [Unknown]
  - Influenza [Unknown]

NARRATIVE: CASE EVENT DATE: 20200319
